FAERS Safety Report 18492355 (Version 1)
Quarter: 2020Q4

REPORT INFORMATION
  Report Type: Spontaneous
  Country: DE (occurrence: DE)
  Receive Date: 20201111
  Receipt Date: 20201111
  Transmission Date: 20210114
  Serious: Yes (Hospitalization)
  Sender: FDA-Public Use
  Company Number: DE-PFIZER INC-2020437194

PATIENT
  Age: 72 Year
  Sex: Male
  Weight: 89 kg

DRUGS (12)
  1. TORASEMID [Concomitant]
     Active Substance: TORSEMIDE
     Dosage: 10 MG, 1X/DAY (10 MG, 1-0-0-0)
  2. LERCANIDIPIN [Concomitant]
     Active Substance: LERCANIDIPINE
     Dosage: 5 MG, 1X/DAY (10 MG, 0.5-0-0-0)
  3. CANDESARTAN/HYDROCHLOROTHIAZIDE [Concomitant]
     Active Substance: CANDESARTAN CILEXETIL\HYDROCHLOROTHIAZIDE
     Dosage: 1 DF, 1X/DAY (16|12.5 MG, 1-0-0-0)
  4. CALCIUM FOLINATE [Suspect]
     Active Substance: LEUCOVORIN CALCIUM
     Dosage: UNK (LAST DOSE GIVEN ON 07FEB2020)
     Dates: end: 20200207
  5. OXALIPLATIN. [Suspect]
     Active Substance: OXALIPLATIN
     Dosage: UNK (LAST DOSE GIVEN ON 07FEB2020)
     Dates: end: 20200207
  6. SPIOLTO RESPIMAT [Concomitant]
     Active Substance: OLODATEROL HYDROCHLORIDE\TIOTROPIUM BROMIDE MONOHYDRATE
     Dosage: 2 DF, 1X/DAY (2.5|2.5 UG, 2-0-0-0)
  7. FLUOROURACIL. [Suspect]
     Active Substance: FLUOROURACIL
     Dosage: UNK (LAST DOSE GIVEN ON 07FEB2020)
     Dates: end: 20200207
  8. METFORMIN [Concomitant]
     Active Substance: METFORMIN HYDROCHLORIDE
     Dosage: 500 MG, 1X/DAY (1000 MG, 0.5-0-0-0)
  9. ACETYLSALICYLIC ACID [Concomitant]
     Active Substance: ASPIRIN
     Dosage: 100 MG, 1X/DAY (100 MG, 1-0-0-0)
  10. ATORVASTATIN [Concomitant]
     Active Substance: ATORVASTATIN
     Dosage: 30 MG, 1X/DAY (30 MG, 0-0-1-0)
  11. METOPROLOL. [Concomitant]
     Active Substance: METOPROLOL
     Dosage: 100 MG, 1X/DAY (100 MG, 1-0-0-0)
  12. PANTOPRAZOL [PANTOPRAZOLE] [Concomitant]
     Active Substance: PANTOPRAZOLE
     Dosage: 40 MG, 2X/DAY (40 MG, 1-0-1-0 FREQ:12 H;)

REACTIONS (5)
  - Fatigue [Unknown]
  - General physical health deterioration [Unknown]
  - Pyrexia [Unknown]
  - Chills [Unknown]
  - Dizziness [Unknown]
